FAERS Safety Report 7184003-2 (Version None)
Quarter: 2010Q4

REPORT INFORMATION
  Report Type: 
  Country: None (occurrence: None)
  Receive Date: 20101222
  Receipt Date: 20101213
  Transmission Date: 20110411
  Serious: Yes (Hospitalization)
  Sender: FDA-Public Use
  Company Number: US-ENDO PHARMACEUTICALS INC.-SPLN20100143

PATIENT
  Age: 7 Year
  Sex: Female

DRUGS (3)
  1. SUPPRELIN LA [Suspect]
     Indication: PRECOCIOUS PUBERTY
     Route: 058
     Dates: start: 20100701
  2. PREVACID [Concomitant]
     Dosage: UNK
     Route: 065
  3. SINGULAIR [Concomitant]
     Dosage: UNK
     Route: 065

REACTIONS (6)
  - APPLICATION SITE SWELLING [None]
  - CHEST PAIN [None]
  - DIARRHOEA [None]
  - EMOTIONAL DISORDER [None]
  - HYPERTENSION [None]
  - MOOD SWINGS [None]
